FAERS Safety Report 22945814 (Version 2)
Quarter: 2023Q4

REPORT INFORMATION
  Report Type: Spontaneous
  Country: US (occurrence: US)
  Receive Date: 20230914
  Receipt Date: 20231012
  Transmission Date: 20240110
  Serious: Yes (Other)
  Sender: FDA-Public Use
  Company Number: US-BRISTOL-MYERS SQUIBB COMPANY-2023-130498

PATIENT
  Age: 79 Year
  Sex: Female

DRUGS (1)
  1. LENALIDOMIDE [Suspect]
     Active Substance: LENALIDOMIDE
     Indication: Plasma cell myeloma
     Dosage: FREQ -TAKE 1 CAPSULE BY MOUTH ONCE DAILY FOR 14 DAYS EVERY 21 DAYS
     Route: 048
     Dates: start: 20230825

REACTIONS (3)
  - Amnesia [Not Recovered/Not Resolved]
  - Off label use [Unknown]
  - Rhinitis allergic [Not Recovered/Not Resolved]
